FAERS Safety Report 6523830-9 (Version None)
Quarter: 2009Q4

REPORT INFORMATION
  Report Type: 
  Country: None (occurrence: None)
  Receive Date: 20091231
  Receipt Date: 20091224
  Transmission Date: 20100525
  Serious: Yes (Hospitalization)
  Sender: FDA-Public Use
  Company Number: JP-ASTRAZENECA-2009SE33601

PATIENT
  Age: 77 Year
  Sex: Male

DRUGS (1)
  1. MEROPEN [Suspect]
     Indication: MENINGITIS
     Route: 041
     Dates: start: 20091114, end: 20091127

REACTIONS (1)
  - INTERSTITIAL LUNG DISEASE [None]
